FAERS Safety Report 14689359 (Version 1)
Quarter: 2018Q1

REPORT INFORMATION
  Report Type: Spontaneous
  Country: US (occurrence: US)
  Receive Date: 20180328
  Receipt Date: 20180328
  Transmission Date: 20180509
  Serious: No
  Sender: FDA-Public Use
  Company Number: US-009507513-1803USA009408

PATIENT
  Sex: Female

DRUGS (11)
  1. ZOLOFT [Concomitant]
     Active Substance: SERTRALINE HYDROCHLORIDE
  2. PROTONIX [Concomitant]
     Active Substance: PANTOPRAZOLE SODIUM
  3. METOPROLOL. [Concomitant]
     Active Substance: METOPROLOL
  4. JANUMET [Suspect]
     Active Substance: METFORMIN HYDROCHLORIDE\SITAGLIPTIN PHOSPHATE
     Indication: DIABETES MELLITUS
     Dosage: ONE TABLET TWICE PER DAY
     Route: 048
     Dates: start: 2015
  5. MIRAPEX [Concomitant]
     Active Substance: PRAMIPEXOLE DIHYDROCHLORIDE
  6. PROVENTIL [Concomitant]
     Active Substance: ALBUTEROL
  7. FENOFIBRATE. [Concomitant]
     Active Substance: FENOFIBRATE
  8. PRINIVIL [Concomitant]
     Active Substance: LISINOPRIL
  9. INVOKANA [Concomitant]
     Active Substance: CANAGLIFLOZIN
  10. AMITRIPTYLINE HYDROCHLORIDE. [Concomitant]
     Active Substance: AMITRIPTYLINE HYDROCHLORIDE
  11. LANTUS [Concomitant]
     Active Substance: INSULIN GLARGINE

REACTIONS (2)
  - Visual impairment [Not Recovered/Not Resolved]
  - Drug dose omission [Unknown]
